FAERS Safety Report 19384051 (Version 1)
Quarter: 2021Q2

REPORT INFORMATION
  Report Type: Spontaneous
  Country: US (occurrence: US)
  Receive Date: 20210608
  Receipt Date: 20210608
  Transmission Date: 20210717
  Serious: No
  Sender: FDA-Public Use
  Company Number: US-JNJFOC-20210557770

PATIENT
  Age: 22 Year
  Sex: Male
  Weight: 90.8 kg

DRUGS (1)
  1. ZYRTEC [Suspect]
     Active Substance: CETIRIZINE HYDROCHLORIDE
     Indication: SEASONAL ALLERGY
     Dosage: 1 TABLET?LAST DATE OF DRUG ADMINISTRATION: 26/MAY/2021
     Route: 048
     Dates: start: 20210521

REACTIONS (3)
  - Drug ineffective [Unknown]
  - Product lot number issue [Unknown]
  - Product expiration date issue [Unknown]
